FAERS Safety Report 10539284 (Version 1)
Quarter: 2014Q4

REPORT INFORMATION
  Report Type: Spontaneous
  Country: PT (occurrence: PT)
  Receive Date: 20141023
  Receipt Date: 20141023
  Transmission Date: 20150529
  Serious: Yes (Death)
  Sender: FDA-Public Use
  Company Number: PHHY2014PT134452

PATIENT
  Age: 82 Year
  Sex: Female

DRUGS (1)
  1. AMIODARONE [Suspect]
     Active Substance: AMIODARONE
     Indication: PRODUCT USED FOR UNKNOWN INDICATION
     Route: 065

REACTIONS (6)
  - Cardiac failure [Fatal]
  - Tachyarrhythmia [Fatal]
  - Hyperthyroidism [Fatal]
  - Atrial fibrillation [Fatal]
  - Multi-organ failure [Fatal]
  - Acute coronary syndrome [Fatal]
